FAERS Safety Report 4451282-1 (Version None)
Quarter: 2004Q3

REPORT INFORMATION
  Report Type: 
  Country: None (occurrence: None)
  Receive Date: 20040915
  Receipt Date: 20040915
  Transmission Date: 20050211
  Serious: Yes (Hospitalization)
  Sender: FDA-Public Use
  Company Number: None

PATIENT
  Age: 81 Year
  Sex: Male

DRUGS (11)
  1. CYCLOPHOSPHAMIDE [Suspect]
     Indication: PROSTATE CANCER
     Dosage: 50 MG/M2P  QD DAY 1-14  ORAL
     Route: 048
  2. ETOPOSIDE [Suspect]
     Indication: PROSTATE CANCER
     Dosage: 50 MG/M2   QD DAY 1-14   ORAL
     Route: 048
  3. PLAVIX [Concomitant]
  4. LASIX [Concomitant]
  5. ASPIRIN [Concomitant]
  6. PROTONIX [Concomitant]
  7. ZOMETA [Concomitant]
  8. NITROGLYCERIN [Concomitant]
  9. PERCOCET [Concomitant]
  10. IBUPROFEN [Concomitant]
  11. ZOFRAN [Concomitant]

REACTIONS (1)
  - ABDOMINAL PAIN LOWER [None]
